FAERS Safety Report 4444581-0 (Version None)
Quarter: 2004Q3

REPORT INFORMATION
  Report Type: 
  Country: None (occurrence: None)
  Receive Date: 20040902
  Receipt Date: 20040823
  Transmission Date: 20050211
  Serious: Yes (Other)
  Sender: FDA-Public Use
  Company Number: 2004059295

PATIENT
  Sex: Female

DRUGS (11)
  1. ZYRTEC-D 12 HOUR [Suspect]
     Indication: ILL-DEFINED DISORDER
  2. PRAMIPEXOLE (PRAMIPEXOLE) [Suspect]
     Indication: ILL-DEFINED DISORDER
  3. CLONAZEPAM [Suspect]
     Indication: ILL-DEFINED DISORDER
  4. MIRTAZAPNE (MIRTAZAPINE) [Suspect]
     Indication: ILL-DEFINED DISORDER
  5. AMITRIPTYLINE HCL [Suspect]
     Indication: ILL-DEFINED DISORDER
  6. BUPROPION HYDROCHLORIDE [Suspect]
     Indication: ILL-DEFINED DISORDER
  7. MONTELUKAST SODIUM (MONTELUKAST SODIUM) [Concomitant]
  8. COMBIVENT [Concomitant]
  9. MIRTAZAPINE [Concomitant]
  10. ESOMEPRAZOLE (ESOMEPRAZOLE) [Concomitant]
  11. SALBUTAMOL (SALBUTAMOL) [Concomitant]

REACTIONS (6)
  - ANXIETY [None]
  - CHRONIC OBSTRUCTIVE AIRWAYS DISEASE [None]
  - DENTAL OPERATION [None]
  - HYPERSENSITIVITY [None]
  - POLYNEUROPATHY [None]
  - SINUS DISORDER [None]
